FAERS Safety Report 6698139-3 (Version None)
Quarter: 2010Q2

REPORT INFORMATION
  Report Type: 
  Country: None (occurrence: None)
  Receive Date: 20100427
  Receipt Date: 20100415
  Transmission Date: 20101027
  Serious: Yes (Death, Hospitalization)
  Sender: FDA-Public Use
  Company Number: SK-PFIZER INC-2006126231

PATIENT
  Age: 60 Year
  Sex: Male
  Weight: 72 kg

DRUGS (8)
  1. SUNITINIB MALATE [Suspect]
     Indication: RENAL CANCER
     Dosage: 50 MG, 1X/DAY
     Route: 048
     Dates: start: 20051212, end: 20061012
  2. BUPRENORPHINE [Concomitant]
     Dosage: UNK
     Route: 062
     Dates: start: 20051206
  3. CLODRONATE DISODIUM [Concomitant]
     Dosage: UNK
     Route: 048
     Dates: start: 20051029
  4. TRAMADOL HCL [Concomitant]
     Dosage: UNK
     Route: 048
     Dates: start: 20051130
  5. LACTULOSE [Concomitant]
     Dosage: UNK
     Route: 048
     Dates: start: 20051206, end: 20060201
  6. VASOCARDIN [Concomitant]
     Dosage: UNK
     Route: 048
     Dates: start: 20060106
  7. NADROPARIN [Concomitant]
     Dosage: UNK
     Route: 058
     Dates: start: 20060217
  8. MORPHINE [Concomitant]
     Dosage: UNK
     Route: 048
     Dates: start: 20060123

REACTIONS (3)
  - DEHYDRATION [None]
  - DIARRHOEA [None]
  - RENAL FAILURE [None]
